FAERS Safety Report 24856999 (Version 2)
Quarter: 2025Q1

REPORT INFORMATION
  Report Type: Spontaneous
  Country: US (occurrence: US)
  Receive Date: 20250117
  Receipt Date: 20250220
  Transmission Date: 20250408
  Serious: No
  Sender: PFIZER
  Company Number: US-PFIZER INC-PV202500002167

PATIENT
  Age: 14 Year
  Sex: Male

DRUGS (2)
  1. NGENLA [Suspect]
     Active Substance: SOMATROGON-GHLA
     Indication: Hypopituitarism
     Dosage: 28 MG, WEEKLY
     Dates: start: 20250113
  2. NGENLA [Suspect]
     Active Substance: SOMATROGON-GHLA
     Indication: Growth hormone deficiency

REACTIONS (2)
  - Injection site haemorrhage [Unknown]
  - Injection site discharge [Unknown]

NARRATIVE: CASE EVENT DATE: 20250113
